FAERS Safety Report 6260192-9 (Version None)
Quarter: 2009Q3

REPORT INFORMATION
  Report Type: 
  Country: None (occurrence: None)
  Receive Date: 20090708
  Receipt Date: 20090701
  Transmission Date: 20100115
  Serious: Yes (Hospitalization)
  Sender: FDA-Public Use
  Company Number: B0568235A

PATIENT
  Sex: Male

DRUGS (4)
  1. EPIVIR [Suspect]
     Indication: DRUG USE FOR UNKNOWN INDICATION
     Route: 065
     Dates: start: 20001001, end: 20080501
  2. VIDEX [Suspect]
     Indication: DRUG USE FOR UNKNOWN INDICATION
     Route: 065
     Dates: start: 20040101, end: 20080501
  3. KALETRA [Suspect]
     Indication: HIV INFECTION
     Route: 048
     Dates: start: 20001001, end: 20080501
  4. CIPRALEX [Suspect]
     Indication: DRUG USE FOR UNKNOWN INDICATION
     Route: 065
     Dates: start: 20080401

REACTIONS (6)
  - ACUTE ABDOMEN [None]
  - CONDITION AGGRAVATED [None]
  - DRUG INTERACTION [None]
  - FAT TISSUE INCREASED [None]
  - LIPOATROPHY [None]
  - LIPODYSTROPHY ACQUIRED [None]
